FAERS Safety Report 20728077 (Version 4)
Quarter: 2022Q2

REPORT INFORMATION
  Report Type: Report from Study
  Country: CO (occurrence: CO)
  Receive Date: 20220420
  Receipt Date: 20220621
  Transmission Date: 20220720
  Serious: Yes (Hospitalization, Other)
  Sender: FDA-Public Use
  Company Number: CO-JNJFOC-20220427557

PATIENT
  Age: 58 Year
  Sex: Female
  Weight: 56 kg

DRUGS (1)
  1. IMBRUVICA [Suspect]
     Active Substance: IBRUTINIB
     Indication: Mantle cell lymphoma
     Route: 048
     Dates: start: 20210527

REACTIONS (4)
  - Pneumonia bacterial [Not Recovered/Not Resolved]
  - Lung disorder [Not Recovered/Not Resolved]
  - Pneumonia aspiration [Recovering/Resolving]
  - Vomiting [Not Recovered/Not Resolved]

NARRATIVE: CASE EVENT DATE: 20220407
